FAERS Safety Report 7301139-3 (Version None)
Quarter: 2011Q1

REPORT INFORMATION
  Report Type: 
  Country: None (occurrence: None)
  Receive Date: 20110218
  Receipt Date: 20110215
  Transmission Date: 20110831
  Serious: Yes (Hospitalization)
  Sender: FDA-Public Use
  Company Number: CA-AMGEN-CANSP2011006693

PATIENT
  Age: 42 Year
  Sex: Male
  Weight: 72 kg

DRUGS (5)
  1. ENBREL [Suspect]
     Indication: ANKYLOSING SPONDYLITIS
     Dosage: 50 MG, UNK
     Dates: start: 20090402
  2. VOLTAREN [Concomitant]
  3. NEXIUM [Concomitant]
  4. TYLENOL (CAPLET) [Concomitant]
     Dosage: UNK UNK, PRN
  5. MULTIVITAMIN                       /00097801/ [Concomitant]
     Dosage: UNK UNK, QD

REACTIONS (2)
  - INJECTION SITE PAIN [None]
  - HIP ARTHROPLASTY [None]
